FAERS Safety Report 6406304-5 (Version None)
Quarter: 2009Q4

REPORT INFORMATION
  Report Type: 
  Country: None (occurrence: None)
  Receive Date: 20091019
  Receipt Date: 20091013
  Transmission Date: 20100525
  Serious: Yes (Life-Threatening)
  Sender: FDA-Public Use
  Company Number: PHHY2009DE44290

PATIENT
  Age: 71 Year
  Sex: Male

DRUGS (3)
  1. LEPONEX [Suspect]
     Indication: PSYCHOTIC DISORDER
     Dosage: 100 MG, UNK
     Route: 048
     Dates: start: 20090710
  2. ARTANE [Concomitant]
     Dosage: 1 DF, 3 DAYS
     Route: 048
  3. METAMIZOL [Concomitant]
     Dosage: UNK
     Route: 048

REACTIONS (5)
  - BILIRUBINURIA [None]
  - HYPERBILIRUBINAEMIA [None]
  - INTESTINAL OBSTRUCTION [None]
  - LEUKOPENIA [None]
  - RENAL FAILURE [None]
